FAERS Safety Report 8163668-2 (Version None)
Quarter: 2012Q1

REPORT INFORMATION
  Report Type: 
  Country: None (occurrence: None)
  Receive Date: 20120224
  Receipt Date: 20120222
  Transmission Date: 20120608
  Serious: Yes (Hospitalization)
  Sender: FDA-Public Use
  Company Number: GB-ABBOTT-12P-167-0898741-00

PATIENT
  Age: 39 Year

DRUGS (2)
  1. CLARITHROMYCIN [Suspect]
     Indication: URINARY TRACT INFECTION
     Route: 042
     Dates: start: 20111030, end: 20111101
  2. CLARITHROMYCIN [Suspect]
     Indication: PNEUMONIA
     Route: 048

REACTIONS (12)
  - COUGH [None]
  - ARTHRALGIA [None]
  - MONOPARESIS [None]
  - MUSCLE SWELLING [None]
  - INSOMNIA [None]
  - MOBILITY DECREASED [None]
  - BURNING SENSATION [None]
  - WRONG TECHNIQUE IN DRUG USAGE PROCESS [None]
  - PAIN [None]
  - HYPOAESTHESIA [None]
  - OEDEMA PERIPHERAL [None]
  - PARAESTHESIA [None]
